FAERS Safety Report 9220115 (Version 1)
Quarter: 2013Q2

REPORT INFORMATION
  Report Type: Spontaneous
  Country: US (occurrence: None)
  Receive Date: 20130408
  Receipt Date: 20130408
  Transmission Date: 20140414
  Serious: No
  Sender: FDA-Public Use
  Company Number: None

PATIENT
  Age: 25 Year
  Sex: Female
  Weight: 88 kg

DRUGS (1)
  1. CYMBALTA 60 MG ELI LILL [Suspect]
     Indication: DEPRESSION
     Dosage: ONCE DAILY PO 1 1/2 YEARS
     Route: 048

REACTIONS (13)
  - Nightmare [None]
  - Abnormal dreams [None]
  - Enuresis [None]
  - Vomiting [None]
  - Nausea [None]
  - Dizziness [None]
  - Hyperhidrosis [None]
  - Asthenia [None]
  - Feeling abnormal [None]
  - Oropharyngeal pain [None]
  - Dyspnoea [None]
  - Chest discomfort [None]
  - Vision blurred [None]
